FAERS Safety Report 13688929 (Version 5)
Quarter: 2018Q4

REPORT INFORMATION
  Report Type: Report from Study
  Country: US (occurrence: US)
  Receive Date: 20170626
  Receipt Date: 20181231
  Transmission Date: 20190204
  Serious: Yes (Other)
  Sender: FDA-Public Use
  Company Number: US-BAYER-2017-120697

PATIENT
  Age: 76 Year
  Sex: Female
  Weight: 79.38 kg

DRUGS (6)
  1. XARELTO [Suspect]
     Active Substance: RIVAROXABAN
     Indication: THROMBOSIS
     Dosage: 20 MG, QD
     Route: 048
     Dates: start: 201705, end: 201803
  2. ACETYLSALICYLIC ACID({=100 MG) [Suspect]
     Active Substance: ASPIRIN
     Indication: PRODUCT USED FOR UNKNOWN INDICATION
     Dosage: 81 MG, QD
     Route: 065
  3. XARELTO [Suspect]
     Active Substance: RIVAROXABAN
     Indication: THROMBOSIS
     Dosage: 15 MG, BID
     Route: 048
     Dates: start: 201705, end: 201705
  4. LOSARTAN. [Concomitant]
     Active Substance: LOSARTAN
     Indication: BLOOD PRESSURE ABNORMAL
     Dosage: 50 MG, UNK
     Route: 065
  5. XARELTO [Suspect]
     Active Substance: RIVAROXABAN
     Indication: THROMBOSIS
     Dosage: 10 MG, QD
     Route: 048
     Dates: start: 201803, end: 201806
  6. RANITIDINE. [Concomitant]
     Active Substance: RANITIDINE
     Indication: GASTROOESOPHAGEAL REFLUX DISEASE
     Dosage: 150 MG, BID
     Route: 065
     Dates: start: 2014

REACTIONS (16)
  - Gastric haemorrhage [Recovering/Resolving]
  - Hyperhidrosis [Recovering/Resolving]
  - Insomnia [Not Recovered/Not Resolved]
  - Gingival erosion [Not Recovered/Not Resolved]
  - Headache [Unknown]
  - Therapeutic response increased [Unknown]
  - Urticaria [Recovering/Resolving]
  - Night sweats [Not Recovered/Not Resolved]
  - Depression [Not Recovered/Not Resolved]
  - Chest pain [Unknown]
  - Weight increased [Unknown]
  - Faeces discoloured [Unknown]
  - Gingival bleeding [Recovering/Resolving]
  - Blood urine present [Unknown]
  - Tooth erosion [Not Recovered/Not Resolved]
  - Hot flush [Recovering/Resolving]

NARRATIVE: CASE EVENT DATE: 2017
